FAERS Safety Report 7629137 (Version 11)
Quarter: 2012Q4

REPORT INFORMATION
  Report Type: 
  Country: US (occurrence: US)
  Receive Date: 20101014
  Receipt Date: 20121218
  Transmission Date: 20130627
  Serious: Yes (Hospitalization, Other)
  Sender: FDA-Public Use
  Company Number: PHHY2010US68040

PATIENT
  Age: 53 Year
  Sex: Female
  Weight: 149 kg

DRUGS (15)
  1. GILENYA [Suspect]
     Indication: RELAPSING-REMITTING MULTIPLE SCLEROSIS
     Dosage: 0.5 mg, QD
     Route: 048
     Dates: start: 20101004
  2. GILENYA [Interacting]
     Dosage: 0.5 mg, QOD
     Route: 048
  3. TOPROL [Interacting]
     Dosage: 25 mg, BID
     Dates: start: 20090618, end: 20101130
  4. BACLOFEN [Concomitant]
  5. PROVIGIL [Concomitant]
  6. CLONAPIN [Concomitant]
  7. RESTASIS [Concomitant]
  8. NEXIUM [Concomitant]
  9. RECLAST [Concomitant]
  10. CALCIUM [Concomitant]
  11. VITAMIN D [Concomitant]
  12. MULTIVITAMINS [Concomitant]
  13. ALBUTEROL [Concomitant]
  14. LIDODERM [Concomitant]
     Indication: PAIN
     Dosage: UNK UKN, Q12H
     Dates: start: 200912
  15. NEURONTIN [Concomitant]
     Indication: NEUROPATHY PERIPHERAL
     Dosage: 2 DF, TID
     Route: 048
     Dates: start: 201106

REACTIONS (12)
  - Viral infection [Recovered/Resolved]
  - Bronchitis [Recovered/Resolved]
  - Fall [Recovered/Resolved]
  - Heart rate decreased [Recovered/Resolved]
  - Heart rate irregular [Recovered/Resolved]
  - Vomiting [Recovered/Resolved]
  - Nausea [Recovered/Resolved]
  - Chills [Recovered/Resolved]
  - Pyrexia [Recovered/Resolved]
  - Alopecia [Recovered/Resolved]
  - Drug interaction [Recovered/Resolved]
  - Inappropriate schedule of drug administration [Unknown]
